FAERS Safety Report 6047977-9 (Version None)
Quarter: 2009Q1

REPORT INFORMATION
  Report Type: 
  Country: None (occurrence: None)
  Receive Date: 20090123
  Receipt Date: 20090114
  Transmission Date: 20090719
  Serious: Yes (Other)
  Sender: FDA-Public Use
  Company Number: PHBS2009FR00544

PATIENT

DRUGS (5)
  1. ETOPOSIDE [Suspect]
     Indication: HODGKIN'S DISEASE
     Dosage: 200 MG/M2/D
  2. VINDESINE [Concomitant]
     Indication: HODGKIN'S DISEASE
     Dosage: 1 MG/M2/D
  3. ADRIAMYCIN PFS [Concomitant]
     Indication: HODGKIN'S DISEASE
     Dosage: 33 MG/M2/D
  4. CARMUSTINE [Concomitant]
     Indication: HODGKIN'S DISEASE
     Dosage: 140 MG/M2/D
  5. METHYLPREDNISOLONE 16MG TAB [Concomitant]
     Indication: HODGKIN'S DISEASE
     Dosage: 120 MG/M2/D

REACTIONS (1)
  - DISEASE PROGRESSION [None]
